FAERS Safety Report 11681513 (Version 1)
Quarter: 2015Q4

REPORT INFORMATION
  Report Type: Spontaneous
  Country: US (occurrence: None)
  Receive Date: 20151028
  Receipt Date: 20151028
  Transmission Date: 20160304
  Serious: Yes (Disabling, Other)
  Sender: FDA-Public Use
  Company Number: None

PATIENT
  Age: 54 Year
  Sex: Female
  Weight: 86.64 kg

DRUGS (7)
  1. ARMOUR THYROID [Concomitant]
     Active Substance: THYROID, PORCINE\THYROID, UNSPECIFIED
  2. CALCIUM [Concomitant]
     Active Substance: CALCIUM
  3. ARMOUR THYROID [Suspect]
     Active Substance: THYROID, PORCINE\THYROID, UNSPECIFIED
     Indication: THYROIDECTOMY
     Dosage: 100 TABLETS (ORIGINAL BOTTLE) 1/2 GRAIN
     Route: 048
     Dates: start: 20150626, end: 20150924
  4. VIT. D3 [Concomitant]
  5. MULTI VITAMINS [Concomitant]
  6. VIT. B [Concomitant]
  7. IRON [Concomitant]
     Active Substance: IRON

REACTIONS (7)
  - Product physical issue [None]
  - Alopecia [None]
  - Weight increased [None]
  - Asthenia [None]
  - Incorrect product storage [None]
  - Product formulation issue [None]
  - Drug effect decreased [None]

NARRATIVE: CASE EVENT DATE: 20150626
